FAERS Safety Report 6167473-8 (Version None)
Quarter: 2009Q2

REPORT INFORMATION
  Report Type: 
  Country: None (occurrence: None)
  Receive Date: 20090424
  Receipt Date: 20090331
  Transmission Date: 20091009
  Serious: Yes (Hospitalization, Disabling)
  Sender: FDA-Public Use
  Company Number: FI-SANOFI-SYNTHELABO-A01200903427

PATIENT
  Age: 36 Year
  Sex: Female

DRUGS (3)
  1. AVASTIN [Suspect]
     Indication: ADENOCARCINOMA
     Route: 042
     Dates: start: 20081020, end: 20081020
  2. XELODA [Suspect]
     Indication: ADENOCARCINOMA
     Route: 048
     Dates: start: 20081020, end: 20081020
  3. ELOXATIN [Suspect]
     Indication: ADENOCARCINOMA
     Route: 042
     Dates: start: 20080516, end: 20080516

REACTIONS (1)
  - REVERSIBLE POSTERIOR LEUKOENCEPHALOPATHY SYNDROME [None]
